FAERS Safety Report 5908050-0 (Version None)
Quarter: 2008Q4

REPORT INFORMATION
  Report Type: 
  Country: None (occurrence: None)
  Receive Date: 20081003
  Receipt Date: 20081003
  Transmission Date: 20090506
  Serious: Yes (Hospitalization, Other)
  Sender: FDA-Public Use
  Company Number: GB-ROXANE LABORATORIES, INC.-2008-RO-00057RO

PATIENT
  Sex: Male

DRUGS (13)
  1. LITHIUM CARBONATE [Suspect]
     Indication: DRUG EXPOSURE DURING PREGNANCY
     Route: 064
  2. LACTULOSE [Suspect]
     Indication: DRUG EXPOSURE DURING PREGNANCY
     Route: 064
  3. OLANZAPINE [Suspect]
     Indication: DRUG EXPOSURE DURING PREGNANCY
     Route: 064
  4. CLONAZEPAM [Suspect]
     Indication: DRUG EXPOSURE DURING PREGNANCY
     Route: 064
  5. FOLIC ACID [Suspect]
     Indication: DRUG EXPOSURE DURING PREGNANCY
     Route: 064
  6. RANITIDINE [Suspect]
     Indication: DRUG EXPOSURE DURING PREGNANCY
     Route: 064
  7. METOCLOPRAMIDE [Suspect]
     Indication: DRUG EXPOSURE DURING PREGNANCY
     Route: 064
  8. SODIUM CITRATE [Suspect]
     Indication: DRUG EXPOSURE DURING PREGNANCY
     Route: 064
  9. THIOPENTONE [Suspect]
     Indication: DRUG EXPOSURE DURING PREGNANCY
     Route: 064
  10. SUXAMETHONIUM [Suspect]
     Indication: DRUG EXPOSURE DURING PREGNANCY
     Route: 064
  11. ISOFLURANE [Suspect]
     Indication: DRUG EXPOSURE DURING PREGNANCY
     Route: 064
  12. OXYGEN [Suspect]
     Indication: DRUG EXPOSURE DURING PREGNANCY
     Route: 064
  13. HARTMANN'S SOLUTION [Suspect]
     Route: 064

REACTIONS (3)
  - PREMATURE BABY [None]
  - THERAPEUTIC AGENT TOXICITY [None]
  - TRANSVERSE PRESENTATION [None]
